FAERS Safety Report 9233082 (Version 1)
Quarter: 2013Q2

REPORT INFORMATION
  Report Type: Spontaneous
  Country: US (occurrence: US)
  Receive Date: 20130416
  Receipt Date: 20130416
  Transmission Date: 20140414
  Serious: Yes (Other)
  Sender: FDA-Public Use
  Company Number: PHEH2013US002657

PATIENT
  Sex: Female

DRUGS (1)
  1. RECLAST [Suspect]
     Indication: OSTEOPOROSIS
     Dosage: 5 MG/100 ML ANNUALLY
     Route: 042
     Dates: start: 201210

REACTIONS (6)
  - Neoplasm malignant [Unknown]
  - Influenza like illness [Unknown]
  - Pain [Unknown]
  - Asthenia [Unknown]
  - Musculoskeletal pain [Unknown]
  - Musculoskeletal discomfort [Unknown]
